FAERS Safety Report 7207641-7 (Version None)
Quarter: 2011Q1

REPORT INFORMATION
  Report Type: 
  Country: None (occurrence: None)
  Receive Date: 20110103
  Receipt Date: 20101231
  Transmission Date: 20110831
  Serious: Yes (Hospitalization)
  Sender: FDA-Public Use
  Company Number: US-PFIZER INC-2010050738

PATIENT
  Sex: Female
  Weight: 73.016 kg

DRUGS (14)
  1. LEVOTHYROXINE [Concomitant]
     Indication: THYROID DISORDER
     Dosage: 100 UG, 1X/DAY
     Route: 048
  2. HYDROCHLOROTHIAZIDE [Concomitant]
     Indication: OEDEMA PERIPHERAL
     Dosage: UNK
  3. DETROL LA [Suspect]
     Indication: URINARY INCONTINENCE
     Dosage: 04 MG, 1X/DAY
     Route: 048
     Dates: start: 20091009
  4. ZESTRIL [Concomitant]
     Dosage: UNK MG, 1X/DAY
     Route: 048
  5. VITAMIN D [Concomitant]
     Dosage: UNK
  6. PROCARDIA [Concomitant]
     Indication: ARRHYTHMIA PROPHYLAXIS
     Dosage: UNK MG, UNK
     Route: 048
  7. ACETAMINOPHEN [Concomitant]
     Indication: PAIN
     Dosage: UNK
     Route: 048
  8. IRON [Concomitant]
     Dosage: UNK
     Route: 048
  9. LUMIGAN [Concomitant]
     Indication: OCULAR HYPERTENSION
     Dosage: UNK
     Route: 047
  10. ADVIL [Suspect]
     Dosage: UNK MG, UNK
     Route: 048
  11. TRAVATAN [Concomitant]
     Indication: OCULAR HYPERTENSION
     Dosage: UNK
     Route: 047
  12. PRILOSEC [Concomitant]
     Dosage: UNK
     Route: 048
  13. OS-CAL [Concomitant]
     Dosage: UNK
     Route: 048
  14. CENTRUM SILVER [Concomitant]
     Dosage: UNK MG, 1X/DAY
     Route: 048

REACTIONS (1)
  - GASTRIC ULCER [None]
